FAERS Safety Report 8823441 (Version 1)
Quarter: 2012Q4

REPORT INFORMATION
  Report Type: 
  Country: FR (occurrence: FR)
  Receive Date: 20121003
  Receipt Date: 20121003
  Transmission Date: 20130627
  Serious: Yes (Disabling)
  Sender: FDA-Public Use
  Company Number: FR-MERCK-1209FRA011363

PATIENT
  Age: 55 Year
  Sex: Male

DRUGS (6)
  1. ZOCOR [Suspect]
     Indication: MYOCARDIAL INFARCTION
     Dosage: 40 mg, qd
     Route: 048
     Dates: start: 20080420, end: 20100615
  2. KARDEGIC [Concomitant]
  3. SELOKEN [Concomitant]
  4. COVERSYL (PERINDOPRIL ARGININE) [Concomitant]
  5. ZOCOR [Suspect]
     Indication: MYOCARDIAL INFARCTION
     Dosage: 20 mg, qd
     Route: 048
     Dates: start: 20100616, end: 20110922
  6. ZOCOR [Suspect]
     Dosage: 10 mg, qd
     Route: 048
     Dates: start: 20110923

REACTIONS (2)
  - Type 2 diabetes mellitus [Not Recovered/Not Resolved]
  - Hyperglycaemia [Not Recovered/Not Resolved]
